FAERS Safety Report 10237657 (Version 1)
Quarter: 2014Q2

REPORT INFORMATION
  Report Type: Spontaneous
  Country: US (occurrence: US)
  Receive Date: 20140616
  Receipt Date: 20140616
  Transmission Date: 20141212
  Serious: Yes (Hospitalization, Other)
  Sender: FDA-Public Use
  Company Number: US-AMGEN INC.-USASP2014044201

PATIENT
  Age: 24 Year
  Sex: Female

DRUGS (20)
  1. ENBREL [Suspect]
     Indication: PSORIASIS
     Dosage: 50 MG, 2 TIMES/WK
     Route: 065
     Dates: start: 20040401, end: 201406
  2. ENBREL [Suspect]
     Indication: PSORIATIC ARTHROPATHY
  3. AMEVIVE [Suspect]
     Indication: PSORIASIS
     Dosage: UNK
     Route: 065
     Dates: start: 2004, end: 2004
  4. AMEVIVE [Suspect]
     Indication: PSORIATIC ARTHROPATHY
  5. METHOTREXATE [Suspect]
     Indication: PSORIASIS
     Dosage: UNK
     Route: 065
     Dates: start: 2005
  6. METHOTREXATE [Suspect]
     Indication: PSORIATIC ARTHROPATHY
  7. RAPTIVA [Suspect]
     Indication: PSORIASIS
     Dosage: UNK
     Route: 065
     Dates: start: 2006, end: 2006
  8. RAPTIVA [Suspect]
     Indication: PSORIATIC ARTHROPATHY
  9. PREDNISONE [Suspect]
     Indication: PSORIASIS
     Dosage: UNK
     Route: 065
  10. PREDNISONE [Suspect]
     Indication: PSORIATIC ARTHROPATHY
  11. CYCLOSPORINE [Suspect]
     Indication: PSORIASIS
     Dosage: UNK
     Route: 065
     Dates: start: 2007, end: 2007
  12. CYCLOSPORINE [Suspect]
     Indication: PSORIATIC ARTHROPATHY
  13. HUMIRA [Suspect]
     Indication: PSORIASIS
     Dosage: UNK
     Route: 065
     Dates: start: 2007, end: 2007
  14. HUMIRA [Suspect]
     Indication: PSORIATIC ARTHROPATHY
  15. REMICADE [Suspect]
     Indication: PSORIASIS
     Dosage: UNK
     Route: 065
     Dates: start: 2007, end: 2008
  16. REMICADE [Suspect]
     Indication: PSORIATIC ARTHROPATHY
  17. STELERA [Suspect]
     Indication: PSORIASIS
     Dosage: UNK
     Route: 065
     Dates: start: 2011, end: 2013
  18. STELERA [Suspect]
     Indication: PSORIATIC ARTHROPATHY
  19. BENADRYL                           /00000402/ [Suspect]
     Indication: PSORIASIS
     Dosage: UNK
     Route: 065
     Dates: start: 2007
  20. BENADRYL                           /00000402/ [Suspect]
     Indication: PSORIATIC ARTHROPATHY

REACTIONS (13)
  - Psoriatic arthropathy [Recovered/Resolved]
  - Arthropathy [Recovered/Resolved]
  - Blood pressure increased [Recovered/Resolved]
  - Heart rate increased [Recovered/Resolved]
  - Dyspnoea [Recovered/Resolved]
  - Drug hypersensitivity [Recovered/Resolved]
  - Choking sensation [Recovered/Resolved]
  - Hepatic enzyme increased [Recovered/Resolved]
  - Migraine [Not Recovered/Not Resolved]
  - Vomiting [Not Recovered/Not Resolved]
  - Sinusitis [Not Recovered/Not Resolved]
  - Psoriasis [Not Recovered/Not Resolved]
  - Drug ineffective [Recovered/Resolved]
